FAERS Safety Report 23127404 (Version 2)
Quarter: 2023Q4

REPORT INFORMATION
  Report Type: Spontaneous
  Country: JP (occurrence: JP)
  Receive Date: 20231031
  Receipt Date: 20231204
  Transmission Date: 20240110
  Serious: Yes (Other)
  Sender: FDA-Public Use
  Company Number: JP-JNJFOC-20231067194

PATIENT
  Age: 70 Year
  Sex: Male

DRUGS (18)
  1. VELCADE [Suspect]
     Active Substance: BORTEZOMIB
     Indication: Plasma cell leukaemia
     Dosage: DOSE UNKNOWN
     Route: 065
  2. VELCADE [Suspect]
     Active Substance: BORTEZOMIB
     Dosage: DOSE UNKNOWN
     Route: 065
  3. DARATUMUMAB [Suspect]
     Active Substance: DARATUMUMAB
     Indication: Plasma cell leukaemia
     Dosage: DOSE UNKNOWN
     Route: 058
  4. PANOBINOSTAT LACTATE [Suspect]
     Active Substance: PANOBINOSTAT LACTATE
     Indication: Plasma cell leukaemia
     Dosage: DOSE UNKNOWN
     Route: 048
  5. PANOBINOSTAT LACTATE [Suspect]
     Active Substance: PANOBINOSTAT LACTATE
     Indication: Plasma cell leukaemia
     Dosage: DOSE UNKNOWN
     Route: 048
  6. LENALIDOMIDE HYDROCHLORIDE MONOHYDRATE [Concomitant]
     Indication: Plasma cell leukaemia
     Dosage: DOSE UNKNOWN
     Route: 048
  7. LENALIDOMIDE HYDROCHLORIDE MONOHYDRATE [Concomitant]
     Indication: Plasma cell leukaemia
     Dosage: DOSE UNKNOWN
     Route: 048
  8. LENALIDOMIDE HYDROCHLORIDE MONOHYDRATE [Concomitant]
     Indication: Plasma cell leukaemia
     Dosage: DOSE UNKNOWN
     Route: 048
  9. DEXAMETHASONE [Concomitant]
     Active Substance: DEXAMETHASONE
     Indication: Plasma cell leukaemia
     Dosage: DOSE UNKNOWN
     Route: 065
  10. DEXAMETHASONE [Concomitant]
     Active Substance: DEXAMETHASONE
     Indication: Plasma cell leukaemia
     Dosage: DOSE UNKNOWN
     Route: 065
  11. DEXAMETHASONE [Concomitant]
     Active Substance: DEXAMETHASONE
     Indication: Plasma cell leukaemia
     Dosage: DOSE UNKNOWN
     Route: 065
  12. DEXAMETHASONE [Concomitant]
     Active Substance: DEXAMETHASONE
     Indication: Plasma cell leukaemia
     Dosage: DOSE UNKNOWN
     Route: 065
  13. DEXAMETHASONE [Concomitant]
     Active Substance: DEXAMETHASONE
     Indication: Plasma cell leukaemia
     Dosage: DOSE UNKNOWN
     Route: 065
  14. DEXAMETHASONE [Concomitant]
     Active Substance: DEXAMETHASONE
     Indication: Plasma cell leukaemia
     Dosage: DOSE UNKNOWN
     Route: 065
  15. CARFILZOMIB [Concomitant]
     Active Substance: CARFILZOMIB
     Indication: Plasma cell leukaemia
     Dosage: DOSE UNKNOWN
     Route: 065
  16. ISATUXIMAB [Concomitant]
     Active Substance: ISATUXIMAB
     Indication: Plasma cell leukaemia
     Dosage: DOSE UNKNOWN
     Route: 065
  17. POMALIDOMIDE [Concomitant]
     Active Substance: POMALIDOMIDE
     Indication: Plasma cell leukaemia
     Dosage: DOSE UNKNOWN
     Route: 065
  18. ELOTUZUMAB [Concomitant]
     Active Substance: ELOTUZUMAB
     Indication: Plasma cell leukaemia
     Dosage: DOSE UNKNOWN
     Route: 065

REACTIONS (3)
  - Leukoencephalopathy [Recovering/Resolving]
  - Adverse event [Unknown]
  - Off label use [Unknown]
